FAERS Safety Report 8987337 (Version 1)
Quarter: 2012Q4

REPORT INFORMATION
  Report Type: 
  Country: US (occurrence: US)
  Receive Date: 20121226
  Receipt Date: 20121226
  Transmission Date: 20130627
  Serious: No
  Sender: FDA-Public Use
  Company Number: US-BAYER-2012-131166

PATIENT
  Age: 65 Year
  Sex: Female

DRUGS (9)
  1. BETASERON [Suspect]
     Dosage: 0.25 mg (1ml), QOD
     Route: 058
  2. CYMBALTA [Concomitant]
  3. DETROL LA [Concomitant]
  4. HYDROCHLOROTHIAZID [Concomitant]
  5. FOSAMAX [Concomitant]
  6. MULTIVITAMIN [Concomitant]
  7. LIPITOR [Concomitant]
  8. VITAMIN D [Concomitant]
  9. MIRAPEX [Concomitant]

REACTIONS (2)
  - Restless legs syndrome [Unknown]
  - Memory impairment [Unknown]
